FAERS Safety Report 16353416 (Version 1)
Quarter: 2019Q2

REPORT INFORMATION
  Report Type: Report from Study
  Country: US (occurrence: US)
  Receive Date: 20190524
  Receipt Date: 20190524
  Transmission Date: 20190711
  Serious: Yes (Other)
  Sender: FDA-Public Use
  Company Number: US-MYLANLABS-2019M1048628

PATIENT

DRUGS (2)
  1. TEMOZOLOMIDE. [Suspect]
     Active Substance: TEMOZOLOMIDE
     Indication: BRAIN STEM GLIOMA
     Dosage: ON DAYS 1-5 OF 28 DAY COURSE
     Route: 048
  2. VELIPARIB [Suspect]
     Active Substance: VELIPARIB
     Indication: BRAIN STEM GLIOMA
     Dosage: ON DAYS 1-5 OF 28 DAY COURSE
     Route: 048

REACTIONS (1)
  - Brain stem infarction [Unknown]
